FAERS Safety Report 18223223 (Version 1)
Quarter: 2020Q3

REPORT INFORMATION
  Report Type: Spontaneous
  Country: US (occurrence: US)
  Receive Date: 20200902
  Receipt Date: 20200902
  Transmission Date: 20201103
  Serious: Yes (Disabling, Other)
  Sender: FDA-Public Use
  Company Number: US-PURDUE PHARMA-USA-2020-0151636

PATIENT
  Sex: Male
  Weight: 204.8 kg

DRUGS (6)
  1. METOPROLOL. [Concomitant]
     Active Substance: METOPROLOL
     Indication: BLOOD PRESSURE MEASUREMENT
     Dosage: 25 MG, BID
     Route: 065
  2. VICODIN [Suspect]
     Active Substance: ACETAMINOPHEN\HYDROCODONE BITARTRATE
     Indication: LIGAMENT RUPTURE
     Dosage: 8 X 5 MG, DAILY
     Route: 065
  3. NAPROXEN. [Concomitant]
     Active Substance: NAPROXEN
     Indication: PAIN
     Dosage: 500 MG, BID
     Route: 065
  4. OXYCONTIN [Suspect]
     Active Substance: OXYCODONE HYDROCHLORIDE
     Indication: LIGAMENT RUPTURE
     Dosage: 30 MG, BID
     Route: 048
  5. LISINOPRIL. [Concomitant]
     Active Substance: LISINOPRIL
     Indication: BLOOD PRESSURE MEASUREMENT
     Dosage: 20 MG, DAILY
     Route: 065
  6. DULOXETINE. [Concomitant]
     Active Substance: DULOXETINE
     Indication: PAIN
     Dosage: 60 MG, DAILY
     Route: 065

REACTIONS (10)
  - Drug dependence [Unknown]
  - Osteoporosis [Unknown]
  - Infection [Unknown]
  - Personality change [Unknown]
  - Toe operation [Unknown]
  - Meniscus injury [Unknown]
  - Gout [Unknown]
  - Walking aid user [Unknown]
  - Liver disorder [Unknown]
  - Arthritis [Unknown]
